FAERS Safety Report 24147403 (Version 1)
Quarter: 2024Q3

REPORT INFORMATION
  Report Type: Spontaneous
  Country: TR (occurrence: None)
  Receive Date: 20240729
  Receipt Date: 20240729
  Transmission Date: 20241017
  Serious: Yes (Other)
  Sender: ASTRAZENECA
  Company Number: 2024A170116

PATIENT
  Sex: Female

DRUGS (1)
  1. LYNPARZA [Suspect]
     Active Substance: OLAPARIB
     Indication: Thrombocytopenia
     Route: 048
     Dates: start: 20230201

REACTIONS (3)
  - Disease progression [Unknown]
  - Neoplasm [Unknown]
  - Drug ineffective [Unknown]
